FAERS Safety Report 9664100 (Version 1)
Quarter: 2013Q4

REPORT INFORMATION
  Report Type: Spontaneous
  Country: US (occurrence: US)
  Receive Date: 20131101
  Receipt Date: 20131101
  Transmission Date: 20140711
  Serious: No
  Sender: FDA-Public Use
  Company Number: US-B.I. PHARMACEUTICALS,INC./RIDGEFIELD-2013-BI-33918BP

PATIENT
  Age: 7 Decade
  Sex: Male

DRUGS (1)
  1. ZANTAC COOL MINT (TABLETS) [Suspect]
     Indication: GASTROOESOPHAGEAL REFLUX DISEASE
     Dosage: STRENGTH: 150

REACTIONS (1)
  - Flatulence [Unknown]
